APPROVED DRUG PRODUCT: PHENYLEPHRINE HYDROCHLORIDE
Active Ingredient: PHENYLEPHRINE HYDROCHLORIDE
Strength: 0.5MG/5ML (0.1MG/ML)
Dosage Form/Route: SOLUTION;INTRAVENOUS
Application: A215617 | Product #001 | TE Code: AP
Applicant: SOMERSET THERAPEUTICS LLC
Approved: Feb 14, 2025 | RLD: No | RS: No | Type: RX